FAERS Safety Report 20258290 (Version 1)
Quarter: 2021Q4

REPORT INFORMATION
  Report Type: Spontaneous
  Country: US (occurrence: None)
  Receive Date: 20211229
  Receipt Date: 20211229
  Transmission Date: 20220303
  Serious: No
  Sender: FDA-Public Use
  Company Number: None

PATIENT
  Sex: Male

DRUGS (1)
  1. TREMFYA [Suspect]
     Active Substance: GUSELKUMAB
     Indication: Psoriatic arthropathy
     Dosage: FREQUENCY : AS DIRECTED;  INJECT 1 PEN (100MG) ON WEEK 0M THEN ON WEEK 4 THEN EVERY 8 WEEKS THEREAFT
     Route: 058
     Dates: start: 202110

REACTIONS (1)
  - Drug ineffective [None]
